FAERS Safety Report 20894518 (Version 1)
Quarter: 2022Q2

REPORT INFORMATION
  Report Type: Spontaneous
  Country: FR (occurrence: FR)
  Receive Date: 20220531
  Receipt Date: 20220531
  Transmission Date: 20220721
  Serious: Yes (Hospitalization, Other)
  Sender: FDA-Public Use
  Company Number: FR-PBT-004694

PATIENT
  Age: 23 Year
  Sex: Male

DRUGS (5)
  1. TACROLIMUS [Suspect]
     Active Substance: TACROLIMUS
     Indication: Prophylaxis against transplant rejection
     Route: 065
  2. CYCLOSPORINE [Suspect]
     Active Substance: CYCLOSPORINE
     Indication: Nephrotic syndrome
     Route: 042
  3. MYCOPHENOLATE MOFETIL [Suspect]
     Active Substance: MYCOPHENOLATE MOFETIL
     Indication: Prophylaxis against transplant rejection
     Route: 065
  4. UNSPECIFIED INGREDIENT [Suspect]
     Active Substance: UNSPECIFIED INGREDIENT
     Indication: Prophylaxis against transplant rejection
     Route: 065
  5. RITUXIMAB [Suspect]
     Active Substance: RITUXIMAB
     Indication: Nephrotic syndrome
     Dosage: 2 ADMINISTRATIONS (12 AND 14 WEEKS AFTER TRANSPLANTATION)
     Route: 065

REACTIONS (6)
  - Drug ineffective for unapproved indication [Unknown]
  - Drug resistance [Unknown]
  - Focal segmental glomerulosclerosis [Recovered/Resolved]
  - Disease recurrence [Recovered/Resolved]
  - Renal impairment [Recovered/Resolved]
  - Disease progression [Recovered/Resolved]
